FAERS Safety Report 4491145-9 (Version None)
Quarter: 2004Q3

REPORT INFORMATION
  Report Type: 
  Country: None (occurrence: None)
  Receive Date: 20040927
  Receipt Date: 20040803
  Transmission Date: 20050211
  Serious: No
  Sender: FDA-Public Use
  Company Number: USA040874256

PATIENT
  Age: 43 Year
  Sex: Male
  Weight: 105 kg

DRUGS (9)
  1. STRATTERA [Suspect]
     Indication: ATTENTION DEFICIT/HYPERACTIVITY DISORDER
     Dosage: 200 MG/1 DAY
     Dates: start: 20040501
  2. DEPAKOTE [Concomitant]
  3. LORAZEPAM [Concomitant]
  4. NORTRIPTYLINE HCL [Concomitant]
  5. SEROQUEL [Concomitant]
  6. ABILIFY [Concomitant]
  7. ASPIRIN [Concomitant]
  8. ACCUPRIL [Concomitant]
  9. PROPRANOLOL [Concomitant]

REACTIONS (1)
  - PRESCRIBED OVERDOSE [None]
